FAERS Safety Report 6371542-7 (Version None)
Quarter: 2009Q3

REPORT INFORMATION
  Report Type: 
  Country: None (occurrence: None)
  Receive Date: 20090923
  Receipt Date: 20071128
  Transmission Date: 20100115
  Serious: Yes (Other)
  Sender: FDA-Public Use
  Company Number: US-ASTRAZENECA-2007UW18810

PATIENT
  Age: 34 Year
  Sex: Female
  Weight: 90.7 kg

DRUGS (13)
  1. SEROQUEL [Suspect]
     Indication: BIPOLAR DISORDER
     Route: 048
     Dates: start: 19970101, end: 20060101
  2. SEROQUEL [Suspect]
     Indication: SLEEP DISORDER
     Route: 048
     Dates: start: 19970101, end: 20060101
  3. SEROQUEL [Suspect]
     Dosage: 25 - 100 MG
     Route: 048
     Dates: start: 20020103
  4. SEROQUEL [Suspect]
     Dosage: 25 - 100 MG
     Route: 048
     Dates: start: 20020103
  5. EFFEXOR XR [Concomitant]
     Dosage: 37.5 - 225 MG
     Route: 048
     Dates: start: 20020712
  6. VISTARIL [Concomitant]
     Indication: ANXIETY
     Dosage: 35 - 75 MG
     Route: 048
     Dates: start: 20020712
  7. VISTARIL [Concomitant]
     Indication: AGITATION
     Dosage: 35 - 75 MG
     Route: 048
     Dates: start: 20020712
  8. VISTARIL [Concomitant]
     Indication: INSOMNIA
     Dosage: 35 - 75 MG
     Route: 048
     Dates: start: 20020712
  9. WELLBUTRIN SR [Concomitant]
     Indication: DYSTHYMIC DISORDER
     Route: 048
     Dates: start: 20030505
  10. RESTORIL [Concomitant]
     Route: 048
     Dates: start: 20030505
  11. KLONOPIN [Concomitant]
     Dosage: 2 MG HALF DAILY, 1/2 TO 1 AT NIGHT
     Route: 048
     Dates: start: 20050928
  12. ABILIFY [Concomitant]
     Dosage: 5 MG 1/2 DAILY, AFTER 3-4 DAYS 1 TABLET
     Route: 048
     Dates: start: 20050928
  13. TRAZODONE [Concomitant]
     Dosage: 150 MG, 300 - 400 MG
     Route: 048

REACTIONS (4)
  - DIABETES MELLITUS [None]
  - DIABETES MELLITUS INADEQUATE CONTROL [None]
  - HYPERGLYCAEMIA [None]
  - TYPE 2 DIABETES MELLITUS [None]
